FAERS Safety Report 17077241 (Version 1)
Quarter: 2019Q4

REPORT INFORMATION
  Report Type: Spontaneous
  Country: US (occurrence: US)
  Receive Date: 20191126
  Receipt Date: 20191126
  Transmission Date: 20200122
  Serious: Yes (Other)
  Sender: FDA-Public Use
  Company Number: US-AMGEN-USASP2019194067

PATIENT

DRUGS (5)
  1. 5-FLUOROURACIL [FLUOROURACIL] [Concomitant]
     Active Substance: FLUOROURACIL
     Indication: NEOPLASM MALIGNANT
     Dosage: 2400 MILLIGRAM/SQ. METER, Q2WK (DAYS1 AND 15 OF EACH 28-DAY CYCLE)
     Route: 042
  2. PACLITAX NAB [Concomitant]
     Active Substance: PACLITAXEL
     Indication: NEOPLASM MALIGNANT
     Dosage: 125 MILLIGRAM/SQ. METER, Q2WK (DAYS 1 AND 15 OF EACH 28-DAY CYCLE)
     Route: 042
  3. PEGFILGRASTIM [Suspect]
     Active Substance: PEGFILGRASTIM
     Indication: PROPHYLAXIS
     Dosage: UNK UNK, Q2WK (DAYS 4 AND 18 OF EACH CYCLE)
     Route: 058
  4. LEUCOVORIN [FOLINIC ACID] [Concomitant]
     Active Substance: LEUCOVORIN
     Indication: NEOPLASM MALIGNANT
     Dosage: 400 MILLIGRAM/SQ. METER, Q2WK (DAYS 1 AND 15 OF EACH 28-DAY CYCLE)
     Route: 042
  5. IRINOTECAN [Concomitant]
     Active Substance: IRINOTECAN
     Indication: NEOPLASM MALIGNANT
     Dosage: UNK UNK, Q2WK (DAYS 1 AND 15 OF EACH 28-DAY CYCLE)
     Route: 042

REACTIONS (18)
  - Diarrhoea [Unknown]
  - Fatigue [Unknown]
  - Vomiting [Unknown]
  - Platelet count decreased [Unknown]
  - White blood cell count decreased [Unknown]
  - Nausea [Unknown]
  - Infusion related reaction [Unknown]
  - Off label use [Unknown]
  - Peripheral sensory neuropathy [Unknown]
  - Blood alkaline phosphatase increased [Unknown]
  - Anaemia [Unknown]
  - Constipation [Unknown]
  - Abdominal pain [Unknown]
  - Decreased appetite [Unknown]
  - Alopecia [Unknown]
  - Neutrophil count decreased [Unknown]
  - Dysgeusia [Unknown]
  - Disease progression [Unknown]
